FAERS Safety Report 7737912-7 (Version None)
Quarter: 2011Q3

REPORT INFORMATION
  Report Type: 
  Country: None (occurrence: None)
  Receive Date: 20110908
  Receipt Date: 20110831
  Transmission Date: 20111222
  Serious: Yes (Other)
  Sender: FDA-Public Use
  Company Number: PHHY2010US55163

PATIENT
  Sex: Male
  Weight: 88.7 kg

DRUGS (6)
  1. ATACAND [Concomitant]
  2. ASPIRIN [Concomitant]
  3. AVAPRO [Concomitant]
  4. GLEEVEC [Suspect]
     Indication: CHRONIC MYELOID LEUKAEMIA
     Dosage: 400 MG, DAILY
     Route: 048
     Dates: start: 20091201
  5. VITAMIN D [Concomitant]
  6. HYDROCHLOROTHIAZIDE [Concomitant]

REACTIONS (3)
  - FLUID RETENTION [None]
  - DIARRHOEA [None]
  - RENAL FAILURE CHRONIC [None]
